FAERS Safety Report 4750050-0 (Version None)
Quarter: 2005Q3

REPORT INFORMATION
  Report Type: 
  Country: None (occurrence: None)
  Receive Date: 20050822
  Receipt Date: 20050805
  Transmission Date: 20060218
  Serious: Yes (Hospitalization)
  Sender: FDA-Public Use
  Company Number: 2005-0008612

PATIENT
  Age: 75 Year
  Sex: Female

DRUGS (14)
  1. VIREAD [Suspect]
     Indication: HIV INFECTION
     Dosage: 300 MG, 1 IN 1 D, ORAL
     Route: 048
     Dates: start: 20021001
  2. VIDEX EC [Suspect]
     Indication: HIV INFECTION
     Dosage: 250 MG, 1 IN 1 D, ORAL
     Route: 048
     Dates: start: 20021001, end: 20030708
  3. VIRAMUNE [Suspect]
     Indication: HIV INFECTION
     Dosage: 400 MG, 1 IN 1 D, ORAL
     Route: 048
     Dates: start: 20021001, end: 20040226
  4. NORVIR SOFT (RITONAVIR) [Concomitant]
  5. REYATAZ [Concomitant]
  6. EPIVIR [Concomitant]
  7. BLOPRESS (CANDESARTAN CILEXETIL) [Concomitant]
  8. ADALAT [Concomitant]
  9. CIBENOL (CIBENZOLINE SUCCINATE) [Concomitant]
  10. ASPIRIN [Concomitant]
  11. ISOSORBIDE DINITRATE [Concomitant]
  12. BACTRIM [Concomitant]
  13. DILTIAZEM HYDROCHLORIDE [Concomitant]
  14. ADALAT [Concomitant]

REACTIONS (2)
  - ANAEMIA [None]
  - CHEST PAIN [None]
